FAERS Safety Report 4787076-7 (Version None)
Quarter: 2005Q3

REPORT INFORMATION
  Report Type: 
  Country: None (occurrence: None)
  Receive Date: 20050930
  Receipt Date: 20050920
  Transmission Date: 20060218
  Serious: Yes (Hospitalization)
  Sender: FDA-Public Use
  Company Number: DKLU1016894

PATIENT
  Age: 41 Year
  Sex: Female

DRUGS (3)
  1. RISPERIDONE [Suspect]
     Indication: SCHIZOPHRENIA
     Dosage: 2 MG MILLIGRAM (S), ORAL
     Route: 048
     Dates: start: 20040913
  2. LORAZEPAM [Concomitant]
  3. PROCYCLIDINE HYDROCHLORIDE 2MG TAB [Concomitant]

REACTIONS (2)
  - CARCINOMA IN SITU [None]
  - CERVICAL DYSPLASIA [None]
